FAERS Safety Report 17909674 (Version 4)
Quarter: 2021Q2

REPORT INFORMATION
  Report Type: Report from Study
  Country: US (occurrence: US)
  Receive Date: 20200618
  Receipt Date: 20210401
  Transmission Date: 20210717
  Serious: Yes (Death, Other)
  Sender: FDA-Public Use
  Company Number: US-SHIRE-US202019909

PATIENT
  Age: 44 Year
  Sex: Female

DRUGS (13)
  1. TEDUGLUTIDE [Suspect]
     Active Substance: TEDUGLUTIDE
     Indication: MALABSORPTION
     Dosage: 1.31 MILLIGRAM, QD
     Route: 058
     Dates: start: 202002
  2. TEDUGLUTIDE [Suspect]
     Active Substance: TEDUGLUTIDE
     Dosage: 0.1300 UNKNOWN UNIT
     Route: 058
  3. TEDUGLUTIDE [Suspect]
     Active Substance: TEDUGLUTIDE
     Dosage: 0.1300 UNKNOWN UNIT
     Route: 058
  4. TEDUGLUTIDE [Suspect]
     Active Substance: TEDUGLUTIDE
     Indication: MALABSORPTION
     Dosage: 1.31 MILLIGRAM, QD
     Route: 058
     Dates: start: 202002
  5. TEDUGLUTIDE [Suspect]
     Active Substance: TEDUGLUTIDE
     Indication: IMMUNODEFICIENCY
     Dosage: 0.1300 UNKNOWN UNIT
     Route: 058
     Dates: start: 20190223, end: 20190610
  6. TEDUGLUTIDE [Suspect]
     Active Substance: TEDUGLUTIDE
     Indication: IMMUNODEFICIENCY
     Dosage: 0.1300 UNKNOWN UNIT
     Route: 058
     Dates: start: 20190223, end: 20190610
  7. TEDUGLUTIDE [Suspect]
     Active Substance: TEDUGLUTIDE
     Indication: IMMUNODEFICIENCY
     Dosage: 0.1300 UNKNOWN UNIT
     Route: 058
     Dates: start: 20190223, end: 20190610
  8. TEDUGLUTIDE [Suspect]
     Active Substance: TEDUGLUTIDE
     Indication: MALABSORPTION
     Dosage: 1.31 MILLIGRAM, QD
     Route: 058
     Dates: start: 202002
  9. TEDUGLUTIDE [Suspect]
     Active Substance: TEDUGLUTIDE
     Indication: MALABSORPTION
     Dosage: 1.31 MILLIGRAM, QD
     Route: 058
     Dates: start: 202002
  10. TEDUGLUTIDE [Suspect]
     Active Substance: TEDUGLUTIDE
     Dosage: 0.1300 UNKNOWN UNIT
     Route: 058
  11. TEDUGLUTIDE [Suspect]
     Active Substance: TEDUGLUTIDE
     Dosage: 0.1300 UNKNOWN UNIT
     Route: 058
  12. TEDUGLUTIDE [Suspect]
     Active Substance: TEDUGLUTIDE
     Indication: IMMUNODEFICIENCY
     Dosage: 0.1300 UNKNOWN UNIT
     Route: 058
     Dates: start: 20190223, end: 20190610
  13. INSULIN [Concomitant]
     Active Substance: INSULIN NOS
     Indication: PRODUCT USED FOR UNKNOWN INDICATION

REACTIONS (8)
  - Injection site extravasation [Unknown]
  - Intentional product use issue [Unknown]
  - Product dose omission issue [Not Recovered/Not Resolved]
  - Wrong technique in product usage process [Unknown]
  - Stoma complication [Unknown]
  - Vomiting [Unknown]
  - Death [Fatal]
  - Nausea [Unknown]

NARRATIVE: CASE EVENT DATE: 20200610
